FAERS Safety Report 24760039 (Version 1)
Quarter: 2024Q4

REPORT INFORMATION
  Report Type: Spontaneous
  Country: US (occurrence: US)
  Receive Date: 20241220
  Receipt Date: 20241220
  Transmission Date: 20250115
  Serious: Yes (Other)
  Sender: AZURITY PHARMACEUTICALS
  Company Number: US-AZURITY PHARMACEUTICALS, INC.-US-2024AZR000146

PATIENT
  Age: 64 Year
  Sex: Female
  Weight: 68.027 kg

DRUGS (5)
  1. LEVOTHYROXINE\LIOTHYRONINE [Suspect]
     Active Substance: LEVOTHYROXINE\LIOTHYRONINE
     Indication: Hypothyroidism
     Dosage: 16.25 MG 2 TABLETS THREE TIMES A DAY
     Route: 065
     Dates: start: 202303
  2. LEVOTHYROXINE\LIOTHYRONINE [Suspect]
     Active Substance: LEVOTHYROXINE\LIOTHYRONINE
     Dosage: 16.25 MG 2 TABLETS THREE TIMES A DAY
     Route: 065
     Dates: start: 20241118
  3. LEVOTHYROXINE\LIOTHYRONINE [Suspect]
     Active Substance: LEVOTHYROXINE\LIOTHYRONINE
     Dosage: 4 TABLETS DAILY
     Route: 065
  4. LEVOTHYROXINE\LIOTHYRONINE [Suspect]
     Active Substance: LEVOTHYROXINE\LIOTHYRONINE
     Dosage: 16.25 MILLIGRAM, BID
     Route: 065
     Dates: start: 20241205
  5. ADVIL [Concomitant]
     Active Substance: IBUPROFEN
     Indication: Migraine
     Dosage: UNK
     Route: 065

REACTIONS (16)
  - Hypertension [Recovered/Resolved]
  - Supraventricular tachycardia [Recovered/Resolved]
  - Blood potassium decreased [Recovered/Resolved]
  - Extrasystoles [Recovered/Resolved]
  - Nausea [Not Recovered/Not Resolved]
  - Vomiting [Not Recovered/Not Resolved]
  - Asthenia [Not Recovered/Not Resolved]
  - Vision blurred [Not Recovered/Not Resolved]
  - Dizziness [Recovered/Resolved]
  - Housebound [Unknown]
  - Heart rate increased [Recovered/Resolved]
  - Anxiety [Not Recovered/Not Resolved]
  - Hyperhidrosis [Not Recovered/Not Resolved]
  - Insomnia [Not Recovered/Not Resolved]
  - Ill-defined disorder [Unknown]
  - Product quality issue [Unknown]

NARRATIVE: CASE EVENT DATE: 20240202
